FAERS Safety Report 6786581-1 (Version None)
Quarter: 2010Q2

REPORT INFORMATION
  Report Type: 
  Country: None (occurrence: None)
  Receive Date: 20100623
  Receipt Date: 20100610
  Transmission Date: 20101027
  Serious: Yes (Hospitalization, Other)
  Sender: FDA-Public Use
  Company Number: US-ELI_LILLY_AND_COMPANY-US201006003591

PATIENT
  Sex: Female

DRUGS (14)
  1. FORTEO [Suspect]
     Indication: OSTEOPOROSIS
     Dosage: 20 UG, DAILY (1/D)
  2. FUROSEMIDE [Concomitant]
     Dosage: 20 MG, DAILY (1/D)
  3. LISINOPRIL [Concomitant]
     Dosage: 20 MG, 2/D
  4. CLARINEX [Concomitant]
     Dosage: 5 MG, DAILY (1/D)
  5. CLONIDINE [Concomitant]
     Dosage: 2 MG, 2/D
  6. ATIVAN [Concomitant]
     Dosage: 5 MG, DAILY (1/D)
  7. PLAVIX [Concomitant]
     Dosage: 75 MG, DAILY (1/D)
  8. AMLODIPINE [Concomitant]
     Dosage: 2.5 MG, DAILY (1/D)
  9. ATENOLOL [Concomitant]
     Dosage: 50 MG, DAILY (1/D)
  10. POTASSIUM [Concomitant]
     Dosage: 10 MG, DAILY (1/D)
  11. PROTONIX [Concomitant]
     Dosage: 40 MG, DAILY (1/D)
  12. ASPIRIN [Concomitant]
  13. DARVOCET [Concomitant]
     Dosage: UNK, AS NEEDED
  14. MILK OF MAGNESIA TAB [Concomitant]

REACTIONS (9)
  - ATRIAL FIBRILLATION [None]
  - BLOOD PRESSURE ABNORMAL [None]
  - CARDIAC DISORDER [None]
  - CHEST PAIN [None]
  - DYSPNOEA [None]
  - MALAISE [None]
  - MITRAL VALVE PROLAPSE [None]
  - PNEUMONIA [None]
  - VISUAL ACUITY REDUCED [None]
